FAERS Safety Report 5455404-5 (Version None)
Quarter: 2007Q3

REPORT INFORMATION
  Report Type: 
  Country: None (occurrence: None)
  Receive Date: 20070914
  Receipt Date: 20070830
  Transmission Date: 20080115
  Serious: Yes (Life-Threatening)
  Sender: FDA-Public Use
  Company Number: 2007RR-09743

PATIENT
  Age: 63 Year
  Sex: Male

DRUGS (5)
  1. IBUPROFEN [Suspect]
     Indication: ARTHRALGIA
     Dosage: 400 MG, TID, ORAL
     Route: 048
     Dates: start: 20070712, end: 20070812
  2. DEVILS CLAW (HARPAGOPHYTUM PROCUMBENS) [Suspect]
     Indication: ARTHRALGIA
     Dosage: 510 MG, TID, ORAL
     Route: 048
     Dates: end: 20070812
  3. COD LIVER OIL FORTIFIED TAB [Concomitant]
  4. GARLIC (ALLIUM SATIVUM) [Concomitant]
  5. GLUCOSAMINE (GLUCOSAMINE) [Concomitant]

REACTIONS (1)
  - UPPER GASTROINTESTINAL HAEMORRHAGE [None]
